FAERS Safety Report 5474367-X (Version None)
Quarter: 2007Q3

REPORT INFORMATION
  Report Type: 
  Country: None (occurrence: None)
  Receive Date: 20070928
  Receipt Date: 20070928
  Transmission Date: 20080115
  Serious: No
  Sender: FDA-Public Use
  Company Number: None

PATIENT
  Age: 49 Year
  Sex: Female

DRUGS (6)
  1. NITROFURANTOIN [Suspect]
     Dosage: 100 MG BID
     Dates: start: 20040101, end: 20040501
  2. PREDNISONE [Concomitant]
  3. IMURAN [Concomitant]
  4. SYNTHROID [Concomitant]
  5. FOSAMAX [Concomitant]
  6. CELEBREX [Concomitant]

REACTIONS (5)
  - ADVERSE DRUG REACTION [None]
  - AUTOIMMUNE HEPATITIS [None]
  - CHRONIC HEPATITIS [None]
  - HEPATIC FIBROSIS [None]
  - LIVER INJURY [None]
